FAERS Safety Report 20687244 (Version 1)
Quarter: 2022Q2

REPORT INFORMATION
  Report Type: Spontaneous
  Country: JP (occurrence: JP)
  Receive Date: 20220407
  Receipt Date: 20220407
  Transmission Date: 20220721
  Serious: Yes (Death, Other)
  Sender: FDA-Public Use
  Company Number: JP-LOTUS-2022-LOTUS-048675

PATIENT
  Age: 86 Year
  Sex: Female

DRUGS (2)
  1. METHOTREXATE [Suspect]
     Active Substance: METHOTREXATE
     Indication: Rheumatoid arthritis
  2. PREDNISOLONE [Suspect]
     Active Substance: PREDNISOLONE
     Indication: Rheumatoid arthritis

REACTIONS (5)
  - Diffuse large B-cell lymphoma [Unknown]
  - Central nervous system lymphoma [Fatal]
  - Disease recurrence [Fatal]
  - Cytotoxic lesions of corpus callosum [Fatal]
  - Encephalitis [Fatal]
